FAERS Safety Report 7753644-3 (Version None)
Quarter: 2011Q3

REPORT INFORMATION
  Report Type: 
  Country: None (occurrence: None)
  Receive Date: 20110915
  Receipt Date: 20110913
  Transmission Date: 20111222
  Serious: Yes (Death)
  Sender: FDA-Public Use
  Company Number: RU-GLAXOSMITHKLINE-B0747381A

PATIENT
  Age: 63 Year
  Sex: Female

DRUGS (3)
  1. LAPATINIB [Suspect]
     Indication: BREAST CANCER STAGE IV
     Route: 048
     Dates: start: 20110905
  2. TRASTUZUMAB [Concomitant]
     Indication: BREAST CANCER STAGE IV
     Route: 065
  3. CAPECITABINE [Concomitant]
     Indication: BREAST CANCER STAGE IV
     Route: 065

REACTIONS (4)
  - SUDDEN DEATH [None]
  - VENTRICULAR EXTRASYSTOLES [None]
  - ELECTROCARDIOGRAM ABNORMAL [None]
  - CONDITION AGGRAVATED [None]
